FAERS Safety Report 9305123 (Version 1)
Quarter: 2013Q2

REPORT INFORMATION
  Report Type: Spontaneous
  Country: US (occurrence: None)
  Receive Date: 20130521
  Receipt Date: 20130521
  Transmission Date: 20140414
  Serious: Yes (Other)
  Sender: FDA-Public Use
  Company Number: AUR-APL-2013-04196

PATIENT
  Age: 67 Year
  Sex: Male
  Weight: 90.7 kg

DRUGS (4)
  1. LISINOPRIL (LISINOPRIL) [Suspect]
     Indication: HYPERTENSION
     Dosage: 1 D
  2. LYRICA (PREGABALIN) [Suspect]
     Dosage: 300 MG (150 MG, 2 IN 1 D)
     Dates: start: 2009
  3. SIMVASTATIN (SIMVASTATIN) [Concomitant]
  4. LOSARTAN (LOSARTAN) [Concomitant]

REACTIONS (2)
  - Toothache [None]
  - Trigeminal neuralgia [None]
